FAERS Safety Report 15385660 (Version 3)
Quarter: 2019Q1

REPORT INFORMATION
  Report Type: Spontaneous
  Country: JP (occurrence: JP)
  Receive Date: 20180914
  Receipt Date: 20190308
  Transmission Date: 20190417
  Serious: Yes (Life-Threatening, Hospitalization, Other)
  Sender: FDA-Public Use
  Company Number: JP-EISAI MEDICAL RESEARCH-EC-2018-045043

PATIENT
  Age: 74 Year
  Sex: Male
  Weight: 56 kg

DRUGS (2)
  1. LENVIMA [Suspect]
     Active Substance: LENVATINIB
     Route: 048
     Dates: start: 20181004, end: 20181022
  2. LENVIMA [Suspect]
     Active Substance: LENVATINIB
     Indication: HEPATOCELLULAR CARCINOMA
     Route: 048
     Dates: start: 20180409, end: 20180702

REACTIONS (8)
  - Cholangitis chronic [Unknown]
  - Pneumonia [Unknown]
  - Sepsis [Unknown]
  - Diaphragmatic rupture [Unknown]
  - Cerebral infarction [Unknown]
  - Biliary fistula [Unknown]
  - Lung abscess [Unknown]
  - Bronchial fistula [Unknown]

NARRATIVE: CASE EVENT DATE: 20180703
